FAERS Safety Report 7655911-0 (Version None)
Quarter: 2011Q3

REPORT INFORMATION
  Report Type: 
  Country: None (occurrence: None)
  Receive Date: 20110804
  Receipt Date: 20110804
  Transmission Date: 20111222
  Serious: Yes (Other)
  Sender: FDA-Public Use
  Company Number: None

PATIENT
  Sex: Male
  Weight: 79.378 kg

DRUGS (1)
  1. DEXILANT [Suspect]
     Indication: OESOPHAGEAL SPASM
     Dosage: 1
     Dates: start: 20110426, end: 20110522

REACTIONS (9)
  - CONFUSIONAL STATE [None]
  - ANXIETY [None]
  - DISTURBANCE IN ATTENTION [None]
  - DYSPNOEA [None]
  - DEPRESSION [None]
  - EYELID PTOSIS [None]
  - FEELING ABNORMAL [None]
  - AMNESIA [None]
  - RESPIRATORY DISORDER [None]
